FAERS Safety Report 8000641-9 (Version None)
Quarter: 2011Q4

REPORT INFORMATION
  Report Type: 
  Country: None (occurrence: None)
  Receive Date: 20111222
  Receipt Date: 20111215
  Transmission Date: 20120403
  Serious: Yes (Hospitalization)
  Sender: FDA-Public Use
  Company Number: FR-BAYER-2011-121572

PATIENT
  Age: 42 Year
  Sex: Male

DRUGS (1)
  1. HELIXATE [Suspect]
     Indication: RHINOPLASTY
     Dosage: 3000 IU, UNK
     Route: 042
     Dates: start: 20111027, end: 20111122

REACTIONS (2)
  - FACTOR VIII INHIBITION [None]
  - HAEMATOMA [None]
